FAERS Safety Report 8599264-2 (Version None)
Quarter: 2012Q3

REPORT INFORMATION
  Report Type: 
  Country: None (occurrence: None)
  Receive Date: 20120816
  Receipt Date: 20120126
  Transmission Date: 20120928
  Serious: No
  Sender: FDA-Public Use
  Company Number: US-AMGEN-USASP2012005590

PATIENT
  Sex: Female

DRUGS (3)
  1. HALAVEN [Concomitant]
     Dosage: UNK
  2. XGEVA [Suspect]
     Indication: BREAST CANCER
     Dosage: 120 MG, Q6WK
     Dates: start: 20110922
  3. NEUPOGEN [Suspect]
     Indication: PRODUCT USED FOR UNKNOWN INDICATION

REACTIONS (2)
  - GINGIVAL PAIN [None]
  - PAIN IN JAW [None]
